FAERS Safety Report 10019208 (Version 1)
Quarter: 2014Q1

REPORT INFORMATION
  Report Type: Spontaneous
  Country: GB (occurrence: GB)
  Receive Date: 20140318
  Receipt Date: 20140318
  Transmission Date: 20141002
  Serious: Yes (Other)
  Sender: FDA-Public Use
  Company Number: GB-ASTRAZENECA-2014SE16898

PATIENT
  Age: 60 Year
  Sex: Male
  Weight: 102 kg

DRUGS (16)
  1. BRILIQUE [Suspect]
     Route: 048
     Dates: start: 20140205
  2. ADALAT [Concomitant]
     Dates: start: 20131029, end: 20131224
  3. ALLOPURINOL [Concomitant]
     Dates: start: 20131029
  4. AMLODIPINE [Concomitant]
     Dates: start: 20131209
  5. ASPIRIN [Concomitant]
     Dates: start: 20140224
  6. ATENOLOL [Concomitant]
     Dates: start: 20131029
  7. ATORVASTATIN [Concomitant]
     Dates: start: 20131029
  8. CLOPIDOGREL [Concomitant]
     Dates: start: 20140129
  9. DEPO-MEDRONE [Concomitant]
     Dates: start: 20140218, end: 20140219
  10. GLICLAZIDE [Concomitant]
     Dates: start: 20131029
  11. IMUVAC [Concomitant]
     Dates: start: 20131209, end: 20131210
  12. LANSOPRAZOLE [Concomitant]
     Dates: start: 20140129
  13. LISINOPRIL [Concomitant]
     Dates: start: 20131029
  14. MENTHOL [Concomitant]
     Dates: start: 20140129, end: 20140205
  15. METFORMIN [Concomitant]
     Dates: start: 20131029
  16. NITROMIN [Concomitant]
     Dates: start: 20131209, end: 20140106

REACTIONS (3)
  - Dyspnoea [Recovering/Resolving]
  - Paraesthesia [Unknown]
  - Drug hypersensitivity [Unknown]
